FAERS Safety Report 21149779 (Version 1)
Quarter: 2022Q3

REPORT INFORMATION
  Report Type: Spontaneous
  Country: US (occurrence: US)
  Receive Date: 20220729
  Receipt Date: 20220729
  Transmission Date: 20221027
  Serious: Yes (Hospitalization)
  Sender: FDA-Public Use
  Company Number: US-NOVOPROD-877198

PATIENT
  Age: 54 Year
  Sex: Female

DRUGS (5)
  1. OZEMPIC [Suspect]
     Active Substance: SEMAGLUTIDE
     Indication: Type 2 diabetes mellitus
     Dosage: DOSED BY UNKNOWN NUMBER OF CLICKS
     Route: 058
     Dates: start: 20211124, end: 20211201
  2. OZEMPIC [Suspect]
     Active Substance: SEMAGLUTIDE
     Dosage: 12 CLICKS (HALF DOSE)
     Route: 058
     Dates: start: 20211202, end: 20211208
  3. OZEMPIC [Suspect]
     Active Substance: SEMAGLUTIDE
     Dosage: UNK
     Route: 058
     Dates: start: 20211209, end: 20211209
  4. METFORMIN [Concomitant]
     Active Substance: METFORMIN HYDROCHLORIDE
     Indication: Type 2 diabetes mellitus
     Dosage: UNK
     Route: 048
  5. NovoFine Plus 4mm (32G) [Concomitant]
     Indication: Type 2 diabetes mellitus
     Dosage: UNK
     Route: 058

REACTIONS (8)
  - Dizziness [Not Recovered/Not Resolved]
  - Vomiting [Not Recovered/Not Resolved]
  - Retching [Unknown]
  - Nausea [Not Recovered/Not Resolved]
  - Abdominal discomfort [Not Recovered/Not Resolved]
  - Product prescribing error [Unknown]
  - Product use issue [Recovered/Resolved]
  - Product use issue [Recovered/Resolved]

NARRATIVE: CASE EVENT DATE: 20210101
